FAERS Safety Report 20019913 (Version 1)
Quarter: 2021Q4

REPORT INFORMATION
  Report Type: Spontaneous
  Country: US (occurrence: US)
  Receive Date: 20211101
  Receipt Date: 20211101
  Transmission Date: 20220303
  Serious: No
  Sender: FDA-Public Use
  Company Number: US-UNIQUE PHARMACEUTICAL LABORATORIES, A DIV. OF JBCPL-2021UNI000042

PATIENT
  Sex: Female

DRUGS (6)
  1. ATENOLOL [Suspect]
     Active Substance: ATENOLOL
     Indication: Hypertension
     Dosage: ONE FOURTH OF A TABLET ONCE DAILY
     Route: 048
     Dates: start: 20210420, end: 20210824
  2. VITAMIN D [Concomitant]
     Active Substance: VITAMIN D NOS
     Indication: Product used for unknown indication
     Dosage: UNK
     Route: 065
  3. FAMOTIDINE [Concomitant]
     Active Substance: FAMOTIDINE
     Indication: Product used for unknown indication
     Dosage: UNK
     Route: 065
  4. ROSUVASTATIN [Concomitant]
     Active Substance: ROSUVASTATIN
     Indication: Product used for unknown indication
     Dosage: 5 MILLIGRAM
     Route: 065
  5. CBD Cream [Concomitant]
     Indication: Product used for unknown indication
     Dosage: UNK
     Route: 061
  6. Co enzyme Q 10 [Concomitant]
     Indication: Product used for unknown indication
     Dosage: 400 MILLIGRAM
     Route: 065

REACTIONS (5)
  - Blood pressure decreased [Recovered/Resolved]
  - Dizziness [Recovered/Resolved]
  - Intentional product use issue [Unknown]
  - Product size issue [Unknown]
  - Product physical issue [Unknown]
